FAERS Safety Report 6256675-8 (Version None)
Quarter: 2009Q2

REPORT INFORMATION
  Report Type: 
  Country: None (occurrence: None)
  Receive Date: 20090630
  Receipt Date: 20090630
  Transmission Date: 20091009
  Serious: No
  Sender: FDA-Public Use
  Company Number: None

PATIENT
  Age: 58 Year
  Sex: Female

DRUGS (1)
  1. LATISSE [Suspect]
     Dosage: QHS TRANSMAMMARY
     Route: 063
     Dates: start: 20090405, end: 20090608

REACTIONS (1)
  - MADAROSIS [None]
